FAERS Safety Report 4599381-8 (Version None)
Quarter: 2005Q2

REPORT INFORMATION
  Report Type: 
  Country: None (occurrence: None)
  Receive Date: 20050302
  Receipt Date: 20040205
  Transmission Date: 20051028
  Serious: No
  Sender: FDA-Public Use
  Company Number: 7413

PATIENT
  Age: 63 Year
  Sex: Male

DRUGS (2)
  1. METHOTREXATE [Suspect]
     Indication: RHEUMATOID ARTHRITIS
     Dosage: 25 MG WEEKLY IM
     Route: 030
     Dates: end: 20031215
  2. ADALIMUMAB [Suspect]
     Indication: RHEUMATOID ARTHRITIS
     Dosage: 40 MG FORTNIGHTLY SC
     Route: 058
     Dates: start: 20030311, end: 20031215

REACTIONS (2)
  - BRONCHOPNEUMONIA [None]
  - CLOSTRIDIUM COLITIS [None]
